FAERS Safety Report 21766283 (Version 1)
Quarter: 2022Q4

REPORT INFORMATION
  Report Type: Spontaneous
  Country: US (occurrence: US)
  Receive Date: 20221222
  Receipt Date: 20221222
  Transmission Date: 20230113
  Serious: Yes (Other)
  Sender: FDA-Public Use
  Company Number: US-GLAXOSMITHKLINE-US2022AMR187885

PATIENT

DRUGS (1)
  1. BENLYSTA [Suspect]
     Active Substance: BELIMUMAB
     Indication: Systemic lupus erythematosus
     Dosage: 200 MG/ML, WE, INJECT 1 PEN SUBCUTANEOUSLY ONCE WEEKLY
     Route: 058

REACTIONS (10)
  - Malignant neoplasm progression [Unknown]
  - Genital erythema [Unknown]
  - Crying [Unknown]
  - Pain [Unknown]
  - Dyspepsia [Unknown]
  - Amnesia [Unknown]
  - Coronavirus infection [Unknown]
  - Depression [Unknown]
  - Decreased appetite [Unknown]
  - Product dose omission issue [Unknown]
